FAERS Safety Report 21860878 (Version 1)
Quarter: 2023Q1

REPORT INFORMATION
  Report Type: Report from Study
  Country: DE (occurrence: DE)
  Receive Date: 20230113
  Receipt Date: 20230113
  Transmission Date: 20230418
  Serious: Yes (Other)
  Sender: FDA-Public Use
  Company Number: DE-BAYER-2022P032753

PATIENT
  Age: 23 Year
  Sex: Female

DRUGS (4)
  1. RIVAROXABAN [Suspect]
     Active Substance: RIVAROXABAN
     Indication: Factor V Leiden mutation
     Dosage: 15 MG, BID
     Route: 048
  2. RIVAROXABAN [Suspect]
     Active Substance: RIVAROXABAN
     Indication: Deep vein thrombosis
     Dosage: 20 MG, QD
     Route: 048
  3. APIXABAN [Suspect]
     Active Substance: APIXABAN
     Indication: Factor V Leiden mutation
     Dosage: 5 MG, BID
     Route: 048
  4. ESTROGENS [Concomitant]
     Active Substance: ESTROGENS
     Indication: Heavy menstrual bleeding
     Dosage: UNK
     Route: 065

REACTIONS (4)
  - Heavy menstrual bleeding [Recovering/Resolving]
  - Oligomenorrhoea [Recovered/Resolved]
  - Iron deficiency [Unknown]
  - Haemoglobin decreased [Unknown]
